FAERS Safety Report 7338496-8 (Version None)
Quarter: 2011Q1

REPORT INFORMATION
  Report Type: 
  Country: None (occurrence: None)
  Receive Date: 20110210
  Receipt Date: 20101110
  Transmission Date: 20110831
  Serious: No
  Sender: FDA-Public Use
  Company Number: 1000017312

PATIENT
  Age: 31 Year
  Sex: Female

DRUGS (6)
  1. SAVELLA [Suspect]
     Indication: FIBROMYALGIA
     Dosage: SEE IMAGE
     Route: 048
  2. SAVELLA [Suspect]
     Indication: STRESS
     Dosage: SEE IMAGE
     Route: 048
  3. SAVELLA [Suspect]
     Indication: FIBROMYALGIA
     Dosage: SEE IMAGE
     Route: 048
  4. SAVELLA [Suspect]
     Indication: STRESS
     Dosage: SEE IMAGE
     Route: 048
  5. SAVELLA [Suspect]
     Indication: FIBROMYALGIA
     Dosage: SEE IMAGE
     Route: 048
  6. SAVELLA [Suspect]
     Indication: STRESS
     Dosage: SEE IMAGE
     Route: 048

REACTIONS (3)
  - RASH [None]
  - INSOMNIA [None]
  - BLOOD PRESSURE INCREASED [None]
